FAERS Safety Report 24613504 (Version 1)
Quarter: 2024Q4

REPORT INFORMATION
  Report Type: Spontaneous
  Country: US (occurrence: None)
  Receive Date: 20241112
  Receipt Date: 20241112
  Transmission Date: 20250114
  Serious: No
  Sender: Public
  Company Number: None

PATIENT
  Sex: 0

DRUGS (1)
  1. PENICILLAMINE [Suspect]
     Active Substance: PENICILLAMINE

REACTIONS (8)
  - Ageusia [None]
  - Anosmia [None]
  - Dysgeusia [None]
  - Decreased appetite [None]
  - Weight decreased [None]
  - Nausea [None]
  - Abdominal pain [None]
  - Drug ineffective [None]
